FAERS Safety Report 9364180 (Version 1)
Quarter: 2013Q2

REPORT INFORMATION
  Report Type: Spontaneous
  Country: US (occurrence: US)
  Receive Date: 20130624
  Receipt Date: 20130624
  Transmission Date: 20140414
  Serious: Yes (Other)
  Sender: FDA-Public Use
  Company Number: US-PFIZER INC-2013187638

PATIENT
  Age: 52 Year
  Sex: Female
  Weight: 67.12 kg

DRUGS (6)
  1. LYRICA [Suspect]
     Indication: FIBROMYALGIA
     Dosage: 150 MG, 2X/DAY
     Route: 048
  2. HYDROCHLOROTHIAZIDE [Concomitant]
     Indication: HYPERTENSION
     Dosage: 25 MG, 1X/DAY
  3. SYNTHROID [Concomitant]
     Indication: THYROID DISORDER
     Dosage: 1.12 MG, 1X/DAY
  4. ZANTAC [Concomitant]
     Indication: GASTROOESOPHAGEAL REFLUX DISEASE
     Dosage: UNK, 3X/DAY
  5. ZANTAC [Concomitant]
     Indication: DYSPEPSIA
  6. ZOCOR [Concomitant]
     Indication: BLOOD CHOLESTEROL INCREASED
     Dosage: 30 MG, 1X/DAY

REACTIONS (2)
  - Salivary gland mass [Not Recovered/Not Resolved]
  - Pain [Not Recovered/Not Resolved]
